FAERS Safety Report 15759753 (Version 7)
Quarter: 2020Q2

REPORT INFORMATION
  Report Type: Report from Study
  Country: US (occurrence: US)
  Receive Date: 20181226
  Receipt Date: 20200618
  Transmission Date: 20200713
  Serious: Yes (Other)
  Sender: FDA-Public Use
  Company Number: PHEH2018US054305

PATIENT
  Age: 67 Year
  Sex: Female

DRUGS (2)
  1. GILENYA [Suspect]
     Active Substance: FINGOLIMOD HYDROCHLORIDE
     Dosage: 0.5 MG, Q5W (5 DAYS PER WEEK)
     Route: 048
     Dates: start: 20180518
  2. GILENYA [Suspect]
     Active Substance: FINGOLIMOD HYDROCHLORIDE
     Indication: RELAPSING-REMITTING MULTIPLE SCLEROSIS
     Dosage: 0.5 MG, Q5W (5 DAYS PER WEEK)
     Route: 048
     Dates: start: 20180515

REACTIONS (9)
  - Muscle spasms [Recovered/Resolved]
  - Fall [Recovered/Resolved]
  - Central nervous system lesion [Unknown]
  - Feeling abnormal [Unknown]
  - Musculoskeletal pain [Recovered/Resolved]
  - Multiple sclerosis [Unknown]
  - Gait disturbance [Recovered/Resolved]
  - Pain in extremity [Recovering/Resolving]
  - Pain [Recovered/Resolved]

NARRATIVE: CASE EVENT DATE: 20181218
